FAERS Safety Report 25654495 (Version 1)
Quarter: 2025Q3

REPORT INFORMATION
  Report Type: Spontaneous
  Country: EU (occurrence: EU)
  Receive Date: 20250807
  Receipt Date: 20250807
  Transmission Date: 20251021
  Serious: Yes (Hospitalization, Other)
  Sender: STRIDES
  Company Number: EU-STRIDES ARCOLAB LIMITED-2025SP009823

PATIENT
  Sex: Female

DRUGS (15)
  1. IBUPROFEN [Suspect]
     Active Substance: IBUPROFEN
     Indication: Pericarditis
     Route: 065
  2. IBUPROFEN [Suspect]
     Active Substance: IBUPROFEN
     Route: 065
  3. COLCHICINE [Suspect]
     Active Substance: COLCHICINE
     Indication: Pericarditis
     Route: 065
  4. COLCHICINE [Suspect]
     Active Substance: COLCHICINE
     Route: 065
  5. COLCHICINE [Suspect]
     Active Substance: COLCHICINE
     Route: 065
  6. ANAKINRA [Suspect]
     Active Substance: ANAKINRA
     Indication: Pericarditis
     Route: 058
  7. ANAKINRA [Suspect]
     Active Substance: ANAKINRA
     Route: 058
  8. ANAKINRA [Suspect]
     Active Substance: ANAKINRA
     Route: 058
  9. ANAKINRA [Suspect]
     Active Substance: ANAKINRA
     Route: 058
  10. METHYLPREDNISOLONE [Concomitant]
     Active Substance: METHYLPREDNISOLONE
     Indication: Pericarditis
     Route: 065
  11. METHYLPREDNISOLONE [Concomitant]
     Active Substance: METHYLPREDNISOLONE
     Route: 065
  12. METHYLPREDNISOLONE [Concomitant]
     Active Substance: METHYLPREDNISOLONE
     Route: 065
  13. INDOMETHACIN [Concomitant]
     Active Substance: INDOMETHACIN
     Indication: Pericarditis
     Route: 065
  14. INDOMETHACIN [Concomitant]
     Active Substance: INDOMETHACIN
     Route: 065
  15. HYDROCORTISONE [Concomitant]
     Active Substance: HYDROCORTISONE
     Indication: Hypothalamic pituitary adrenal axis suppression
     Route: 065

REACTIONS (6)
  - Pericarditis [Unknown]
  - Rebound effect [Unknown]
  - Drug resistance [Unknown]
  - Maternal exposure during pregnancy [Unknown]
  - Gastrointestinal disorder [Unknown]
  - Off label use [Unknown]
